FAERS Safety Report 7302634-3 (Version None)
Quarter: 2011Q1

REPORT INFORMATION
  Report Type: 
  Country: None (occurrence: None)
  Receive Date: 20110218
  Receipt Date: 20110107
  Transmission Date: 20110831
  Serious: No
  Sender: FDA-Public Use
  Company Number: CL-BAYER-2011-002256

PATIENT
  Age: 46 Year
  Sex: Female

DRUGS (1)
  1. MIRENA [Suspect]
     Indication: METRORRHAGIA
     Dosage: DAILY DOSE 20 ?G/D
     Route: 015
     Dates: start: 20101201, end: 20101222

REACTIONS (1)
  - DEVICE EXPULSION [None]
